FAERS Safety Report 7003008-5 (Version None)
Quarter: 2010Q3

REPORT INFORMATION
  Report Type: 
  Country: None (occurrence: None)
  Receive Date: 20100920
  Receipt Date: 20091110
  Transmission Date: 20110219
  Serious: No
  Sender: FDA-Public Use
  Company Number: US-ASTRAZENECA-2009SE26930

PATIENT
  Age: 57 Year
  Sex: Male
  Weight: 113.4 kg

DRUGS (14)
  1. SEROQUEL [Suspect]
     Indication: BIPOLAR DISORDER
     Dosage: 25MG, 50MG , 100 MG AND 200 MG
     Route: 048
     Dates: start: 20050212, end: 20071013
  2. SEROQUEL [Suspect]
     Indication: ANXIETY
     Dosage: 25MG, 50MG , 100 MG AND 200 MG
     Route: 048
     Dates: start: 20050212, end: 20071013
  3. SEROQUEL [Suspect]
     Indication: PANIC ATTACK
     Dosage: 25MG, 50MG , 100 MG AND 200 MG
     Route: 048
     Dates: start: 20050212, end: 20071013
  4. SEROQUEL [Suspect]
     Route: 048
     Dates: start: 20080101
  5. SEROQUEL [Suspect]
     Route: 048
     Dates: start: 20080101
  6. SEROQUEL [Suspect]
     Route: 048
     Dates: start: 20080101
  7. RISPERDAL [Suspect]
     Indication: BIPOLAR DISORDER
     Dosage: 1MG, 2MG AND 3 MG
     Route: 048
     Dates: end: 20070101
  8. RISPERDAL [Suspect]
     Indication: ANXIETY
     Dosage: 1MG, 2MG AND 3 MG
     Route: 048
     Dates: end: 20070101
  9. RISPERDAL [Suspect]
     Indication: PANIC ATTACK
     Dosage: 1MG, 2MG AND 3 MG
     Route: 048
     Dates: end: 20070101
  10. KLONOPIN [Concomitant]
     Dosage: 0.5 MG TO 1 MG
     Dates: start: 20000101, end: 20000101
  11. KLONOPIN [Concomitant]
     Dates: start: 20080101
  12. ZOLOFT [Concomitant]
     Dosage: 60 MG AND 160 MG
     Dates: start: 20060101
  13. TRILEPTAL [Concomitant]
     Dates: start: 20050101
  14. TRAZODONE HCL [Concomitant]
     Dates: start: 20070101

REACTIONS (5)
  - BLOOD CHOLESTEROL INCREASED [None]
  - BLOOD TRIGLYCERIDES INCREASED [None]
  - HYPERLIPIDAEMIA [None]
  - TYPE 2 DIABETES MELLITUS [None]
  - UPPER LIMB FRACTURE [None]
